FAERS Safety Report 5998416-5 (Version None)
Quarter: 2008Q4

REPORT INFORMATION
  Report Type: 
  Country: None (occurrence: None)
  Receive Date: 20081213
  Receipt Date: 20080705
  Transmission Date: 20090506
  Serious: No
  Sender: FDA-Public Use
  Company Number: US-AMGEN-KDL292448

PATIENT
  Sex: Female

DRUGS (3)
  1. ENBREL [Suspect]
     Indication: RHEUMATOID ARTHRITIS
     Route: 058
     Dates: start: 20070601
  2. PREDNISONE TAB [Suspect]
  3. METHOTREXATE [Concomitant]
     Dates: start: 20080601

REACTIONS (6)
  - ARTHRALGIA [None]
  - FALL [None]
  - JOINT SWELLING [None]
  - OPEN WOUND [None]
  - RHEUMATOID ARTHRITIS [None]
  - WOUND SECRETION [None]
